FAERS Safety Report 7892604-9 (Version None)
Quarter: 2011Q4

REPORT INFORMATION
  Report Type: 
  Country: None (occurrence: None)
  Receive Date: 20111026
  Receipt Date: 20111020
  Transmission Date: 20120403
  Serious: Yes (Other)
  Sender: FDA-Public Use
  Company Number: 2011028772

PATIENT
  Age: 81 Year
  Sex: Female
  Weight: 78.0187 kg

DRUGS (13)
  1. HIZENTRA [Suspect]
     Indication: IMMUNODEFICIENCY COMMON VARIABLE
     Dosage: SEE IMAGE
     Route: 057
     Dates: start: 20110323
  2. HIZENTRA [Suspect]
     Indication: IMMUNODEFICIENCY COMMON VARIABLE
     Dosage: SEE IMAGE
     Route: 057
     Dates: start: 20111019, end: 20111019
  3. HIZENTRA [Suspect]
  4. HIZENTRA [Suspect]
  5. DIOVAN [Concomitant]
  6. CARAFATE [Concomitant]
  7. LOPERAMIDE [Concomitant]
  8. ADVAIR DISKUS 100/50 [Concomitant]
  9. TRAZODONE HCL [Concomitant]
  10. SINGULAIR [Concomitant]
  11. BISOPROLOL FUMARATE [Concomitant]
  12. OXYBUTRIN (OXYBUTYNIN) [Concomitant]
  13. ALBUTEROL [Concomitant]

REACTIONS (2)
  - UPPER RESPIRATORY TRACT INFECTION [None]
  - INJECTION SITE RASH [None]
